FAERS Safety Report 4840418-6 (Version None)
Quarter: 2005Q4

REPORT INFORMATION
  Report Type: 
  Country: None (occurrence: None)
  Receive Date: 20051031
  Receipt Date: 20050815
  Transmission Date: 20060501
  Serious: Yes (Hospitalization)
  Sender: FDA-Public Use
  Company Number: 200516244US

PATIENT
  Age: 21 Year
  Sex: Male

DRUGS (1)
  1. KETEK [Suspect]
     Indication: OTITIS MEDIA
     Dosage: 400 MG QD PO
     Route: 048
     Dates: start: 20050807, end: 20050811

REACTIONS (5)
  - ABDOMINAL PAIN [None]
  - BLOOD AMYLASE INCREASED [None]
  - LIPASE INCREASED [None]
  - PANCREATITIS [None]
  - PYREXIA [None]
